FAERS Safety Report 12983930 (Version 1)
Quarter: 2016Q4

REPORT INFORMATION
  Report Type: Spontaneous
  Country: US (occurrence: US)
  Receive Date: 20161129
  Receipt Date: 20161129
  Transmission Date: 20170207
  Serious: Yes (Death)
  Sender: FDA-Public Use
  Company Number: US-PURDUE PHARMA-DEU-2016-0018418

PATIENT
  Age: 3 Year
  Sex: Male

DRUGS (1)
  1. HYDROMORPHONE HYDROCHLORIDE. [Suspect]
     Active Substance: HYDROMORPHONE HYDROCHLORIDE
     Indication: ACCIDENTAL EXPOSURE TO PRODUCT BY CHILD
     Dosage: 4 MG, SINGLE
     Route: 048

REACTIONS (4)
  - Pulse absent [Fatal]
  - Cardiac arrest [Fatal]
  - Apnoea [Fatal]
  - Accidental exposure to product by child [Fatal]
